FAERS Safety Report 5453529-1 (Version None)
Quarter: 2007Q3

REPORT INFORMATION
  Report Type: 
  Country: None (occurrence: None)
  Receive Date: 20070913
  Receipt Date: 20070903
  Transmission Date: 20080115
  Serious: Yes (Other)
  Sender: FDA-Public Use
  Company Number: GXKR2007TR07666

PATIENT
  Age: 45 Year
  Sex: Female

DRUGS (2)
  1. RIBAVIRIN [Suspect]
     Indication: HEPATITIS C
     Dosage: 1000 MG, DAILY
  2. PEGINTERFERON ALFA-2A                     (PEGINTERFERON ALFA-2A) [Suspect]
     Indication: HEPATITIS C
     Dosage: 180 UG/WEEK

REACTIONS (5)
  - PSORIASIS [None]
  - PYODERMA GANGRENOSUM [None]
  - SCAR [None]
  - SKIN ULCER [None]
  - THERAPEUTIC RESPONSE DECREASED [None]
